FAERS Safety Report 11138729 (Version 1)
Quarter: 2015Q2

REPORT INFORMATION
  Report Type: Spontaneous
  Country: US (occurrence: None)
  Receive Date: 20150526
  Receipt Date: 20150526
  Transmission Date: 20150821
  Serious: Yes (Hospitalization)
  Sender: FDA-Public Use
  Company Number: None

PATIENT
  Age: 87 Year
  Sex: Female
  Weight: 58 kg

DRUGS (2)
  1. PANTOPRAZOLE [Concomitant]
     Active Substance: PANTOPRAZOLE SODIUM
  2. PROTHROMBIN [Suspect]
     Active Substance: PROTHROMBIN
     Indication: PROCOAGULANT THERAPY
     Route: 042

REACTIONS (1)
  - No adverse event [None]

NARRATIVE: CASE EVENT DATE: 20150507
